FAERS Safety Report 4842786-8 (Version None)
Quarter: 2005Q4

REPORT INFORMATION
  Report Type: 
  Country: None (occurrence: None)
  Receive Date: 20051125
  Receipt Date: 20051115
  Transmission Date: 20060501
  Serious: Yes (Other)
  Sender: FDA-Public Use
  Company Number: PAR_0038_2005

PATIENT
  Age: 84 Year
  Sex: Female
  Weight: 72.5755 kg

DRUGS (5)
  1. HYDRALAZINE HCL [Suspect]
     Indication: HYPERTENSION
     Dosage: 1000 MG BID PO
     Route: 048
  2. HYDRALAZINE HCL [Suspect]
     Indication: HYPERTENSION
     Dosage: 75 MG BID PO
     Route: 048
  3. HYDRALAZINE HCL [Suspect]
     Indication: HYPERTENSION
     Dosage: 50 MG BID PO
     Route: 048
     Dates: start: 20040801
  4. TENORMIN [Concomitant]
  5. HYTRIN [Concomitant]

REACTIONS (9)
  - ADVERSE DRUG REACTION [None]
  - CARDIAC FLUTTER [None]
  - CHEST PAIN [None]
  - DIZZINESS [None]
  - GAIT DISTURBANCE [None]
  - HEART RATE INCREASED [None]
  - LETHARGY [None]
  - MEMORY IMPAIRMENT [None]
  - THINKING ABNORMAL [None]
